FAERS Safety Report 8811217 (Version 1)
Quarter: 2012Q4

REPORT INFORMATION
  Report Type: 
  Country: US (occurrence: US)
  Receive Date: 20120927
  Receipt Date: 20120927
  Transmission Date: 20130627
  Serious: Yes (Other)
  Sender: FDA-Public Use
  Company Number: PHEH2012US018472

PATIENT
  Sex: Female

DRUGS (2)
  1. DIOVAN HCT [Suspect]
     Dosage: 1 DF (320mg valsar/12.5mg hydrochlorothiazide), UNK
  2. LETROZOLE [Suspect]
     Dosage: 5 mg, UNK

REACTIONS (1)
  - Breast cancer [Recovering/Resolving]
